FAERS Safety Report 15654091 (Version 1)
Quarter: 2018Q4

REPORT INFORMATION
  Report Type: Spontaneous
  Country: US (occurrence: US)
  Receive Date: 20181125
  Receipt Date: 20181125
  Transmission Date: 20190205
  Serious: Yes (Other)
  Sender: FDA-Public Use
  Company Number: None

PATIENT
  Age: 57 Year
  Sex: Male
  Weight: 75 kg

DRUGS (10)
  1. VALPROIC ACID. [Suspect]
     Active Substance: VALPROIC ACID
     Indication: SEIZURE
     Route: 048
     Dates: start: 20170807, end: 20181023
  2. LEVOTHYROXINE 75 MCG [Concomitant]
  3. RISPERIDONE 1MG [Concomitant]
     Active Substance: RISPERIDONE
  4. ASCORBIC ACID 500MG [Concomitant]
  5. LEVETIRACETAM. [Concomitant]
     Active Substance: LEVETIRACETAM
  6. LOSARTAN 25MG [Concomitant]
     Active Substance: LOSARTAN
  7. DEMECLOCYCLINE 300MG [Concomitant]
  8. DENOSUMAB [Concomitant]
     Active Substance: DENOSUMAB
  9. PANTOPRAZOLE 40MG [Concomitant]
     Active Substance: PANTOPRAZOLE SODIUM
  10. FERROUS SULFATE 325MG [Concomitant]
     Active Substance: FERROUS SULFATE

REACTIONS (6)
  - Mental status changes [None]
  - Leukocytosis [None]
  - Heart rate increased [None]
  - Inappropriate antidiuretic hormone secretion [None]
  - Hyponatraemia [None]
  - Hyperammonaemia [None]

NARRATIVE: CASE EVENT DATE: 20180921
